FAERS Safety Report 12270696 (Version 1)
Quarter: 2016Q2

REPORT INFORMATION
  Report Type: Spontaneous
  Country: US (occurrence: None)
  Receive Date: 20160414
  Receipt Date: 20160414
  Transmission Date: 20160815
  Serious: No
  Sender: FDA-Public Use
  Company Number: None

PATIENT
  Age: 23 Year
  Sex: Female

DRUGS (3)
  1. TREXIMET [Suspect]
     Active Substance: NAPROXEN SODIUM\SUMATRIPTAN SUCCINATE
     Indication: MIGRAINE
     Dosage: 1 PILL ONE BY MOUTH
     Route: 048
     Dates: start: 20150826, end: 20150826
  2. ASPIRIN. [Concomitant]
     Active Substance: ASPIRIN
  3. ALEVE [Concomitant]
     Active Substance: NAPROXEN SODIUM

REACTIONS (8)
  - Throat tightness [None]
  - Feeling abnormal [None]
  - Dyspnoea [None]
  - Dyskinesia [None]
  - Movement disorder [None]
  - Anxiety [None]
  - Swelling face [None]
  - Activities of daily living impaired [None]

NARRATIVE: CASE EVENT DATE: 20150826
